FAERS Safety Report 23987165 (Version 1)
Quarter: 2024Q2

REPORT INFORMATION
  Report Type: Spontaneous
  Country: US (occurrence: None)
  Receive Date: 20240618
  Receipt Date: 20240618
  Transmission Date: 20240716
  Serious: Yes (Hospitalization)
  Sender: FDA-Public Use
  Company Number: None

PATIENT
  Age: 50 Year
  Sex: Male
  Weight: 105 kg

DRUGS (2)
  1. HEPZATO [Suspect]
     Active Substance: MELPHALAN
     Indication: Malignant melanoma
     Dosage: 220 MG LI VER PERFUSION ?
     Route: 050
  2. HEPZATO [Suspect]
     Active Substance: MELPHALAN
     Indication: Metastases to liver

REACTIONS (5)
  - Pain in extremity [None]
  - Pyrexia [None]
  - Blood creatine phosphokinase increased [None]
  - Venoocclusive disease [None]
  - Venoocclusive liver disease [None]

NARRATIVE: CASE EVENT DATE: 20240613
